FAERS Safety Report 21383525 (Version 6)
Quarter: 2022Q4

REPORT INFORMATION
  Report Type: Report from Study
  Country: US (occurrence: US)
  Receive Date: 20220927
  Receipt Date: 20221209
  Transmission Date: 20230113
  Serious: Yes (Hospitalization, Other)
  Sender: FDA-Public Use
  Company Number: US-BRISTOL-MYERS SQUIBB COMPANY-2022-095739

PATIENT
  Age: 63 Year
  Sex: Male

DRUGS (17)
  1. POMALIDOMIDE [Suspect]
     Active Substance: POMALIDOMIDE
     Indication: Plasma cell myeloma
     Dosage: QD 1-12, TEMPORARILY INTERRUPTED ON 12-FEB-2022
     Route: 048
     Dates: start: 20210930, end: 20220505
  2. POMALIDOMIDE [Suspect]
     Active Substance: POMALIDOMIDE
     Dosage: QD 1-21
     Route: 048
     Dates: start: 20220506
  3. POMALIDOMIDE [Suspect]
     Active Substance: POMALIDOMIDE
     Dosage: 4MG QD X28D
     Route: 048
     Dates: start: 20220204, end: 20220204
  4. KYPROLIS [Suspect]
     Active Substance: CARFILZOMIB
     Indication: Plasma cell myeloma
     Dosage: 2 CONSECUTIVE DAYS PER WEEK FOR 3 WEEKS, 1 WEEK OFF
     Route: 042
     Dates: start: 20220204, end: 20220212
  5. KYPROLIS [Suspect]
     Active Substance: CARFILZOMIB
     Route: 065
     Dates: start: 20190720
  6. DEXAMETHASONE [Suspect]
     Active Substance: DEXAMETHASONE
     Indication: Plasma cell myeloma
     Dosage: LOW DOSE, FREQUENCY: QD - 1, 2, 8, 9, 15, 16, 22, 23? QD 1, 8,15,22 OF 28 DAY CYCLE
     Route: 048
     Dates: start: 20220204, end: 20220212
  7. BLENREP [Suspect]
     Active Substance: BELANTAMAB MAFODOTIN-BLMF
     Indication: Product used for unknown indication
     Dosage: Q 1 OF 9 CYCLES
     Route: 042
     Dates: start: 20220506
  8. PROAIR HFA [Concomitant]
     Active Substance: ALBUTEROL SULFATE
     Indication: Dyspnoea
     Dosage: 90 MCG/ PUFF INHALER; Q6H/ PRN; 2 PUFFS
     Route: 048
     Dates: start: 20210921
  9. NORVASC [Concomitant]
     Active Substance: AMLODIPINE BESYLATE
     Indication: Hypertension
     Dosage: QD
     Route: 048
     Dates: start: 20211012
  10. SYMBICORT [Concomitant]
     Active Substance: BUDESONIDE\FORMOTEROL FUMARATE DIHYDRATE
     Indication: Dyspnoea
     Dosage: 160-4.5 MCG/ACTUATION INHALER;?2 PUFFS BID/ PRN
     Route: 048
     Dates: start: 20210921
  11. COREG [Concomitant]
     Active Substance: CARVEDILOL
     Indication: Hypertension
     Route: 048
     Dates: start: 20211217
  12. LOVENOX [Concomitant]
     Active Substance: ENOXAPARIN SODIUM
     Indication: Coagulopathy
     Dosage: 100 MG/ 1 ML PREFILLED SYRINGE BID
     Route: 058
     Dates: start: 20210929
  13. SPIRIVA [Concomitant]
     Active Substance: TIOTROPIUM BROMIDE MONOHYDRATE
     Indication: Dyspnoea
     Dosage: 18 MCG/ INHALATION CAPSULE;?1 CAP W/2 INHALATIONS
     Route: 048
     Dates: start: 20210922
  14. GLYCOLAX [Concomitant]
     Active Substance: POLYETHYLENE GLYCOL 3350
     Indication: Constipation
     Dosage: 17G W/ WATER QD PRN
     Route: 048
     Dates: start: 20220228
  15. REMDESIVIR [Concomitant]
     Active Substance: REMDESIVIR
     Indication: Product used for unknown indication
     Route: 065
     Dates: start: 20220629
  16. REMDESIVIR [Concomitant]
     Active Substance: REMDESIVIR
     Route: 065
     Dates: start: 20220630
  17. REMDESIVIR [Concomitant]
     Active Substance: REMDESIVIR
     Route: 065
     Dates: start: 20220628

REACTIONS (12)
  - Chronic kidney disease [Recovered/Resolved]
  - Deep vein thrombosis [Recovered/Resolved]
  - Cellulitis [Recovered/Resolved]
  - Generalised oedema [Recovered/Resolved]
  - Pneumonia [Recovered/Resolved]
  - Aortic valve stenosis [Unknown]
  - Left atrial enlargement [Unknown]
  - Sinus tachycardia [Unknown]
  - Off label use [Unknown]
  - Anaemia [Unknown]
  - Hypertension [Recovered/Resolved]
  - Renal failure [Unknown]

NARRATIVE: CASE EVENT DATE: 20220119
